FAERS Safety Report 4660224-5 (Version None)
Quarter: 2005Q2

REPORT INFORMATION
  Report Type: 
  Country: None (occurrence: None)
  Receive Date: 20050502
  Receipt Date: 20050311
  Transmission Date: 20051028
  Serious: Yes (Other)
  Sender: FDA-Public Use
  Company Number: 200512120US

PATIENT
  Age: 43 Year
  Sex: Female

DRUGS (3)
  1. KETEK [Suspect]
     Dosage: 800 MG
     Dates: start: 20050305
  2. ANTIBIOTIC NOS [Concomitant]
  3. PYRIDOSTIGMINE BROMIDE (MESTIMOM) [Concomitant]

REACTIONS (2)
  - EYELID DISORDER [None]
  - MYASTHENIA GRAVIS [None]
